APPROVED DRUG PRODUCT: RAPAFLO
Active Ingredient: SILODOSIN
Strength: 4MG
Dosage Form/Route: CAPSULE;ORAL
Application: N022206 | Product #001
Applicant: ABBVIE INC
Approved: Oct 8, 2008 | RLD: Yes | RS: No | Type: DISCN